FAERS Safety Report 13511906 (Version 7)
Quarter: 2017Q4

REPORT INFORMATION
  Report Type: Report from Study
  Country: US (occurrence: US)
  Receive Date: 20170504
  Receipt Date: 20171020
  Transmission Date: 20180320
  Serious: Yes (Other)
  Sender: FDA-Public Use
  Company Number: US-PFIZER INC-2017194936

PATIENT
  Age: 70 Year
  Sex: Female

DRUGS (3)
  1. SUTENT [Suspect]
     Active Substance: SUNITINIB MALATE
     Dosage: 37.5 MG, CYCLIC (ONCE DAILY, 1 WEEK ON, 1 WEEK OFF)
     Route: 048
     Dates: start: 20170615, end: 20170913
  2. SUTENT [Suspect]
     Active Substance: SUNITINIB MALATE
     Indication: RENAL CELL CARCINOMA
     Dosage: 50 MG, 1X/DAY
     Route: 048
     Dates: start: 20170420, end: 20170517
  3. SUTENT [Suspect]
     Active Substance: SUNITINIB MALATE
     Dosage: 37.5 MG, CYCLIC (ONCE DAILY, 2 WEEKS ON, 1 WEEK OFF)
     Route: 048
     Dates: start: 20170518, end: 20170614

REACTIONS (11)
  - Decreased appetite [Recovering/Resolving]
  - Weight decreased [Recovering/Resolving]
  - Palmar-plantar erythrodysaesthesia syndrome [Recovering/Resolving]
  - Fatigue [Unknown]
  - Skin lesion [Recovering/Resolving]
  - Mucosal inflammation [Recovering/Resolving]
  - Herpes zoster [Recovering/Resolving]
  - Stomatitis [Recovering/Resolving]
  - Blister [Unknown]
  - Vomiting [Unknown]
  - Neoplasm progression [Unknown]

NARRATIVE: CASE EVENT DATE: 2017
